FAERS Safety Report 21090056 (Version 1)
Quarter: 2022Q3

REPORT INFORMATION
  Report Type: Report from Study
  Country: US (occurrence: US)
  Receive Date: 20220715
  Receipt Date: 20220715
  Transmission Date: 20221027
  Serious: Yes (Other)
  Sender: FDA-Public Use
  Company Number: US-ABBVIE-21K-163-3940971-00

PATIENT
  Age: 79 Year
  Sex: Female

DRUGS (2)
  1. IMBRUVICA [Suspect]
     Active Substance: IBRUTINIB
     Indication: Mantle cell lymphoma
     Route: 048
  2. IMBRUVICA [Suspect]
     Active Substance: IBRUTINIB
     Dosage: 280 PILL
     Route: 048
     Dates: start: 20220103, end: 20220706

REACTIONS (12)
  - Gastrointestinal lymphoma [Not Recovered/Not Resolved]
  - Emotional disorder [Unknown]
  - Decreased activity [Unknown]
  - Arthropathy [Unknown]
  - Constipation [Unknown]
  - Arthralgia [Unknown]
  - White blood cell count decreased [Unknown]
  - Drug ineffective [Unknown]
  - Pneumonia [Unknown]
  - Unevaluable event [Unknown]
  - Anxiety [Unknown]
  - Blood pressure increased [Unknown]

NARRATIVE: CASE EVENT DATE: 20220103
